FAERS Safety Report 9939112 (Version 1)
Quarter: 2014Q1

REPORT INFORMATION
  Report Type: Report from Study
  Country: US (occurrence: US)
  Receive Date: 20140303
  Receipt Date: 20140303
  Transmission Date: 20141002
  Serious: Yes (Other)
  Sender: FDA-Public Use
  Company Number: US-ASTELLAS-2014US002139

PATIENT
  Age: 65 Year
  Sex: Male

DRUGS (5)
  1. ERLOTINIB TABLET [Suspect]
     Indication: LUNG CARCINOMA CELL TYPE UNSPECIFIED STAGE IV
     Dosage: 150 MG, UID/QD
     Route: 048
     Dates: start: 20131201
  2. ERLOTINIB TABLET [Suspect]
     Dosage: 100 MG, UID/QD
     Route: 048
     Dates: start: 20140201, end: 20140220
  3. WARFARIN [Concomitant]
     Indication: ANTICOAGULANT THERAPY
     Dosage: 1 MG, UID/QD
     Route: 065
  4. OXYCODONE [Concomitant]
     Indication: PAIN
     Dosage: 7.25 MG, Q6 HOURS
     Route: 065
  5. MORPHINE SULFATE [Concomitant]
     Indication: PAIN
     Dosage: 30 MG, Q12 HOURS
     Route: 065

REACTIONS (14)
  - Drug ineffective [Unknown]
  - Skin disorder [Unknown]
  - Malignant neoplasm progression [Unknown]
  - Lymphoma [Unknown]
  - Oedema peripheral [Unknown]
  - Insomnia [Unknown]
  - Scab [Unknown]
  - Dry skin [Unknown]
  - Diarrhoea [Unknown]
  - Decreased appetite [Unknown]
  - Pruritus [Unknown]
  - Asthenia [Unknown]
  - Skin ulcer [Unknown]
  - Weight decreased [Unknown]
